FAERS Safety Report 5120399-0 (Version None)
Quarter: 2006Q4

REPORT INFORMATION
  Report Type: 
  Country: None (occurrence: None)
  Receive Date: 20061004
  Receipt Date: 20020701
  Transmission Date: 20070319
  Serious: Yes (Hospitalization, Other)
  Sender: FDA-Public Use
  Company Number: JP-GLAXOSMITHKLINE-B0272536A

PATIENT
  Age: 23 Year
  Sex: Male

DRUGS (2)
  1. LAMIVUDINE [Suspect]
     Indication: HIV INFECTION
     Dosage: 300MG PER DAY
     Route: 048
     Dates: start: 19970527, end: 20050718
  2. ZIDOVUDINE [Suspect]
     Indication: HIV INFECTION
     Dosage: 800MGD PER DAY
     Route: 048
     Dates: start: 19970527, end: 20011023

REACTIONS (7)
  - ATRIAL SEPTAL DEFECT [None]
  - HEADACHE [None]
  - LOSS OF CONSCIOUSNESS [None]
  - MUSCLE RIGIDITY [None]
  - PULMONARY HYPERTENSION [None]
  - SUBDURAL HAEMORRHAGE [None]
  - VOMITING [None]
